FAERS Safety Report 5837615-X (Version None)
Quarter: 2008Q3

REPORT INFORMATION
  Report Type: 
  Country: None (occurrence: None)
  Receive Date: 20080807
  Receipt Date: 20080728
  Transmission Date: 20090109
  Serious: Yes (Other)
  Sender: FDA-Public Use
  Company Number: PHHY2008AU08533

PATIENT
  Sex: Female

DRUGS (1)
  1. EXJADE [Suspect]
     Indication: LEUKAEMIA
     Dosage: 3 TABLET/DAY
     Route: 048

REACTIONS (5)
  - ANAEMIA [None]
  - ASTHMA [None]
  - BRONCHIECTASIS [None]
  - DYSPNOEA [None]
  - TACHYCARDIA [None]
